FAERS Safety Report 15791757 (Version 1)
Quarter: 2019Q1

REPORT INFORMATION
  Report Type: Spontaneous
  Country: BR (occurrence: BR)
  Receive Date: 20190105
  Receipt Date: 20190105
  Transmission Date: 20190417
  Serious: Yes (Other)
  Sender: FDA-Public Use
  Company Number: BR-ACCORD-100544

PATIENT
  Age: 72 Year
  Sex: Male

DRUGS (2)
  1. CISPLATIN. [Suspect]
     Active Substance: CISPLATIN
     Indication: SQUAMOUS CELL CARCINOMA OF SKIN
     Dosage: DAYS 1-4
  2. FLUOROURACIL. [Suspect]
     Active Substance: FLUOROURACIL
     Indication: SQUAMOUS CELL CARCINOMA OF SKIN
     Dosage: DAYS 1-4

REACTIONS (3)
  - Diarrhoea [Unknown]
  - Off label use [Unknown]
  - Mucosal inflammation [Unknown]
